FAERS Safety Report 6478359-3 (Version None)
Quarter: 2009Q4

REPORT INFORMATION
  Report Type: 
  Country: None (occurrence: None)
  Receive Date: 20091207
  Receipt Date: 20091110
  Transmission Date: 20100525
  Serious: No
  Sender: FDA-Public Use
  Company Number: US-BAYER-200916773BCC

PATIENT
  Age: 59 Year
  Sex: Male
  Weight: 73 kg

DRUGS (2)
  1. ALEVE [Suspect]
     Indication: RESTLESS LEGS SYNDROME
     Dosage: TOTAL DAILY DOSE: 1320 MG  UNIT DOSE: 220 MG
     Route: 048
     Dates: start: 20091110
  2. ASTHMA PUMP [Concomitant]
     Indication: ASTHMA
     Route: 065

REACTIONS (1)
  - SOMNOLENCE [None]
